FAERS Safety Report 9037115 (Version 1)
Quarter: 2013Q1

REPORT INFORMATION
  Report Type: Report from Study
  Country: US (occurrence: US)
  Receive Date: 20130129
  Receipt Date: 20130129
  Transmission Date: 20140127
  Serious: No
  Sender: FDA-Public Use
  Company Number: US-ABBOTT-11P-163-0887132-00

PATIENT
  Age: 39 None
  Sex: Female
  Weight: 51.76 kg

DRUGS (7)
  1. HUMIRA 40 MG/0.8 ML PEN [Suspect]
     Indication: CROHN^S DISEASE
     Dosage: (160 MG, LOADING DOSE)
     Route: 058
     Dates: start: 20111220, end: 20111220
  2. HUMIRA 40 MG/0.8 ML PEN [Suspect]
     Dosage: (80 MG, SECOND LOADING DOSE)
     Dates: start: 20120103, end: 20120103
  3. VICODIN [Concomitant]
     Indication: PAIN
  4. PREDNISONE [Concomitant]
     Indication: CROHN^S DISEASE
  5. APRAZO [Concomitant]
     Indication: CROHN^S DISEASE
  6. IBUPROFEN [Concomitant]
     Indication: PAIN
  7. MULTIVITAMIN [Concomitant]
     Indication: PRODUCT USED FOR UNKNOWN INDICATION

REACTIONS (1)
  - Headache [Not Recovered/Not Resolved]
